FAERS Safety Report 17646186 (Version 1)
Quarter: 2020Q2

REPORT INFORMATION
  Report Type: Spontaneous
  Country: US (occurrence: US)
  Receive Date: 20200408
  Receipt Date: 20200408
  Transmission Date: 20200713
  Serious: No
  Sender: FDA-Public Use
  Company Number: US-SA-2020SA089010

PATIENT
  Age: 9 Year
  Sex: Male

DRUGS (1)
  1. CERDELGA [Suspect]
     Active Substance: ELIGLUSTAT
     Indication: ABDOMINAL LYMPHADENOPATHY
     Route: 065

REACTIONS (1)
  - Wrong technique in product usage process [Unknown]
